FAERS Safety Report 4709916-X (Version None)
Quarter: 2005Q3

REPORT INFORMATION
  Report Type: 
  Country: None (occurrence: None)
  Receive Date: 20050708
  Receipt Date: 20050628
  Transmission Date: 20060218
  Serious: Yes (Other)
  Sender: FDA-Public Use
  Company Number: US-ROCHE-409282

PATIENT
  Age: 36 Year
  Sex: Female

DRUGS (4)
  1. PEGASYS [Suspect]
     Route: 058
     Dates: start: 20050606
  2. COPEGUS [Suspect]
     Route: 048
     Dates: start: 20050606
  3. EFFEXOR [Concomitant]
     Indication: DEPRESSION
     Route: 048
  4. KLONOPIN [Concomitant]
     Indication: ANXIETY
     Route: 048
     Dates: start: 20050526

REACTIONS (2)
  - DEHYDRATION [None]
  - MUSCLE SPASMS [None]
